FAERS Safety Report 11014991 (Version 2)
Quarter: 2015Q2

REPORT INFORMATION
  Report Type: Spontaneous
  Country: US (occurrence: US)
  Receive Date: 20150412
  Receipt Date: 20150525
  Transmission Date: 20150821
  Serious: Yes (Hospitalization)
  Sender: FDA-Public Use
  Company Number: US-JNJFOC-20141210367

PATIENT
  Age: 30 Year
  Sex: Female
  Weight: 47.17 kg

DRUGS (5)
  1. SIMPONI [Suspect]
     Active Substance: GOLIMUMAB
     Indication: PSORIATIC ARTHROPATHY
     Route: 058
     Dates: start: 201101, end: 201307
  2. SIMPONI [Suspect]
     Active Substance: GOLIMUMAB
     Indication: PSORIATIC ARTHROPATHY
     Route: 058
     Dates: start: 201409, end: 20141028
  3. LORAZEPAM. [Concomitant]
     Active Substance: LORAZEPAM
     Route: 065
  4. VITAMIN B3 [Concomitant]
     Active Substance: NIACIN
     Route: 065
  5. ARMOUR THYROID [Concomitant]
     Active Substance: THYROID, PORCINE\THYROID, UNSPECIFIED
     Route: 065

REACTIONS (3)
  - Drug ineffective [Unknown]
  - Multiple sclerosis [Unknown]
  - Maternal exposure before pregnancy [Recovered/Resolved]

NARRATIVE: CASE EVENT DATE: 201307
